FAERS Safety Report 6770260-0 (Version None)
Quarter: 2010Q2

REPORT INFORMATION
  Report Type: 
  Country: None (occurrence: None)
  Receive Date: 20100520
  Receipt Date: 20091103
  Transmission Date: 20101027
  Serious: Yes (Other)
  Sender: FDA-Public Use
  Company Number: 2008058992

PATIENT
  Age: 68 Year
  Sex: Female
  Weight: 53 kg

DRUGS (5)
  1. PROVERA [Suspect]
     Indication: HORMONE REPLACEMENT THERAPY
     Dosage: 10 MG, ORAL; 2.5 MG, ORAL
     Route: 048
     Dates: start: 19840127, end: 19890906
  2. PROVERA [Suspect]
     Indication: HORMONE REPLACEMENT THERAPY
     Dosage: 10 MG, ORAL; 2.5 MG, ORAL
     Route: 048
     Dates: start: 19890906, end: 19960904
  3. PREMARIN [Suspect]
     Indication: HORMONE REPLACEMENT THERAPY
     Dosage: 1.25 MG, ORAL; 0.625 MG
     Route: 048
     Dates: start: 19840127, end: 19841212
  4. PREMARIN [Suspect]
     Indication: HORMONE REPLACEMENT THERAPY
     Dosage: 1.25 MG, ORAL; 0.625 MG
     Route: 048
     Dates: start: 19841212, end: 19960904
  5. PREMPRO [Suspect]
     Indication: HORMONE REPLACEMENT THERAPY
     Dosage: 0.625/2.5MG
     Dates: start: 19960904, end: 19980129

REACTIONS (1)
  - BREAST CANCER FEMALE [None]
